FAERS Safety Report 8964325 (Version 1)
Quarter: 2012Q4

REPORT INFORMATION
  Report Type: 
  Country: US (occurrence: US)
  Receive Date: 20121214
  Receipt Date: 20121214
  Transmission Date: 20130627
  Serious: No
  Sender: FDA-Public Use
  Company Number: US-GLAXOSMITHKLINE-A0967882A

PATIENT
  Age: 69 Year
  Sex: Male

DRUGS (4)
  1. AVODART [Suspect]
     Indication: PROSTATE CANCER
     Dosage: .5MG Per day
     Route: 048
     Dates: start: 200904, end: 20120322
  2. VITAMINS [Concomitant]
  3. CETIRIZINE HYDROCHLORIDE [Concomitant]
  4. SALINE NASAL WASHES [Concomitant]

REACTIONS (6)
  - Semen volume decreased [Not Recovered/Not Resolved]
  - Orgasm abnormal [Unknown]
  - Libido decreased [Unknown]
  - Seminal vesicular disorder [Unknown]
  - Prostatic specific antigen increased [Unknown]
  - Sensation of pressure [Unknown]
